FAERS Safety Report 5202998-0 (Version None)
Quarter: 2006Q4

REPORT INFORMATION
  Report Type: 
  Country: None (occurrence: None)
  Receive Date: 20061016
  Receipt Date: 20051230
  Transmission Date: 20070319
  Serious: Yes (Other)
  Sender: FDA-Public Use
  Company Number: 2005164812

PATIENT
  Age: 71 Year
  Sex: Male
  Weight: 93.8946 kg

DRUGS (6)
  1. GABAPENTIN [Suspect]
     Indication: CONVULSION
     Dosage: 900 MG (300 MG, 3 IN 1 D), ORAL
     Route: 048
     Dates: start: 20040701
  2. WARFARIN SODIUM [Concomitant]
  3. LIPITOR [Concomitant]
  4. ALTACE [Concomitant]
  5. TOPROL-XL [Concomitant]
  6. NORVASC [Concomitant]

REACTIONS (2)
  - ANORGASMIA [None]
  - CONVULSION [None]
